FAERS Safety Report 6195524-3 (Version None)
Quarter: 2009Q2

REPORT INFORMATION
  Report Type: 
  Country: None (occurrence: None)
  Receive Date: 20090519
  Receipt Date: 20090511
  Transmission Date: 20091009
  Serious: Yes (Other)
  Sender: FDA-Public Use
  Company Number: PHHY2009DE12219

PATIENT
  Sex: Male

DRUGS (2)
  1. RASILEZ [Suspect]
     Indication: RENIN
     Dosage: UNK
     Dates: start: 20080701, end: 20080801
  2. FUROSEMIDE [Interacting]

REACTIONS (4)
  - DRUG EFFECT DECREASED [None]
  - DRUG INTERACTION [None]
  - FLUID RETENTION [None]
  - WEIGHT INCREASED [None]
